FAERS Safety Report 23065873 (Version 3)
Quarter: 2023Q4

REPORT INFORMATION
  Report Type: Spontaneous
  Country: CN (occurrence: CN)
  Receive Date: 20231014
  Receipt Date: 20231025
  Transmission Date: 20240110
  Serious: Yes (Death, Other)
  Sender: FDA-Public Use
  Company Number: CN-AMGEN-CHNSP2023181771

PATIENT
  Age: 28 Year
  Sex: Female

DRUGS (4)
  1. BLINCYTO [Suspect]
     Active Substance: BLINATUMOMAB
     Indication: B-cell type acute leukaemia
     Dosage: 9 MICROGRAM, QD (ON CYCLE 1 DAYS 1-7)
     Route: 065
  2. BLINCYTO [Suspect]
     Active Substance: BLINATUMOMAB
     Dosage: 28 MICROGRAM, QD (ON CYCLE 1 DAYS 8-28)
     Route: 065
  3. DEXAMETHASONE [Concomitant]
     Active Substance: DEXAMETHASONE
     Indication: Prophylaxis
     Dosage: 10 MILLIGRAM, QD
  4. DEXAMETHASONE [Concomitant]
     Active Substance: DEXAMETHASONE
     Dosage: 20 MILLIGRAM (ON DAYS 1 AND 8)

REACTIONS (5)
  - Cytokine release syndrome [Unknown]
  - B-cell type acute leukaemia [Fatal]
  - Asthenia [Unknown]
  - Pyrexia [Unknown]
  - Therapy partial responder [Unknown]
